FAERS Safety Report 25993939 (Version 1)
Quarter: 2025Q4

REPORT INFORMATION
  Report Type: Spontaneous
  Country: US (occurrence: US)
  Receive Date: 20251104
  Receipt Date: 20251104
  Transmission Date: 20260118
  Serious: No
  Sender: BIOVITRUM
  Company Number: US-BIOVITRUM-2025-US-014929

PATIENT
  Age: 70 Year
  Sex: Female

DRUGS (1)
  1. VONJO [Suspect]
     Active Substance: PACRITINIB
     Indication: Myelodysplastic syndrome unclassifiable
     Dosage: 2 TABLETS TWICE DAILY
     Route: 048
     Dates: start: 20251015

REACTIONS (6)
  - Diarrhoea [Unknown]
  - Fatigue [Unknown]
  - Night sweats [Unknown]
  - Sleep disorder [Unknown]
  - Platelet count decreased [Unknown]
  - Off label use [Not Recovered/Not Resolved]

NARRATIVE: CASE EVENT DATE: 20251015
